FAERS Safety Report 17067951 (Version 5)
Quarter: 2019Q4

REPORT INFORMATION
  Report Type: Spontaneous
  Country: JP (occurrence: JP)
  Receive Date: 20191122
  Receipt Date: 20191231
  Transmission Date: 20200122
  Serious: Yes (Other)
  Sender: FDA-Public Use
  Company Number: JP-JNJFOC-20191125775

PATIENT
  Sex: Female
  Weight: 45 kg

DRUGS (1)
  1. TRAMCET [Suspect]
     Active Substance: ACETAMINOPHEN\TRAMADOL
     Indication: PRODUCT USED FOR UNKNOWN INDICATION
     Dosage: OFF-LABEL USE 11 TRAMADOL HYDROCHLORIDE/?ACETAMINOPHEN
     Route: 048
     Dates: start: 20150914

REACTIONS (4)
  - Anaemia [Unknown]
  - Renal impairment [Unknown]
  - Inappropriate schedule of product administration [Unknown]
  - Off label use [Unknown]
